FAERS Safety Report 15654056 (Version 1)
Quarter: 2018Q4

REPORT INFORMATION
  Report Type: Spontaneous
  Country: US (occurrence: US)
  Receive Date: 20181115
  Receipt Date: 20181115
  Transmission Date: 20190205
  Serious: No
  Sender: FDA-Public Use
  Company Number: None

PATIENT
  Age: 62 Year
  Sex: Female

DRUGS (2)
  1. CYCLOSPORINE CAP 25MG MOD [Suspect]
     Active Substance: CYCLOSPORINE
     Route: 048
  2. MYCOPHENOLATE MOFETIL CAP 250MG [Suspect]
     Active Substance: MYCOPHENOLATE MOFETIL
     Route: 048
     Dates: start: 2015

REACTIONS (3)
  - Gingival swelling [None]
  - Dental operation [None]
  - Gingival erythema [None]

NARRATIVE: CASE EVENT DATE: 20181114
